FAERS Safety Report 5912953-0 (Version None)
Quarter: 2008Q4

REPORT INFORMATION
  Report Type: 
  Country: None (occurrence: None)
  Receive Date: 20081008
  Receipt Date: 20080929
  Transmission Date: 20090506
  Serious: Yes (Other)
  Sender: FDA-Public Use
  Company Number: US-PFIZER INC-2008082686

PATIENT
  Sex: Female

DRUGS (1)
  1. CHANTIX [Suspect]
     Dates: start: 20080101, end: 20080101

REACTIONS (4)
  - ABNORMAL DREAMS [None]
  - ATRIOVENTRICULAR BLOCK [None]
  - ELECTROCARDIOGRAM CHANGE [None]
  - MYOCARDIAL INFARCTION [None]
